FAERS Safety Report 5361093-0 (Version None)
Quarter: 2007Q2

REPORT INFORMATION
  Report Type: 
  Country: None (occurrence: None)
  Receive Date: 20070618
  Receipt Date: 20070612
  Transmission Date: 20071010
  Serious: Yes (Hospitalization)
  Sender: FDA-Public Use
  Company Number: FR-GENENTECH-234141

PATIENT
  Sex: Male

DRUGS (2)
  1. RAPTIVA [Suspect]
     Indication: PSORIASIS
     Dosage: 0.7 MG/KG, 1/WEEK
     Route: 058
     Dates: start: 20060217, end: 20060303
  2. RAPTIVA [Suspect]
     Dosage: 1 MG/KG, 1/WEEK
     Route: 058
     Dates: start: 20060303, end: 20060701

REACTIONS (1)
  - CHOLECYSTITIS [None]
